FAERS Safety Report 24070030 (Version 1)
Quarter: 2024Q3

REPORT INFORMATION
  Report Type: Report from Study
  Country: CA (occurrence: CA)
  Receive Date: 20240710
  Receipt Date: 20240710
  Transmission Date: 20241017
  Serious: No
  Sender: ROCHE
  Company Number: CA-ROCHE-3419035

PATIENT
  Sex: Female

DRUGS (1)
  1. ALECTINIB [Suspect]
     Active Substance: ALECTINIB
     Indication: Non-small cell lung cancer
     Dosage: DRUG DOSE FIRST ADMINISTERED IS 600 MG PO BID
     Route: 048
     Dates: start: 20201120, end: 20230420

REACTIONS (2)
  - Drug resistance [Unknown]
  - Disease progression [Unknown]
